FAERS Safety Report 25954057 (Version 1)
Quarter: 2025Q4

REPORT INFORMATION
  Report Type: Spontaneous
  Country: EU (occurrence: EU)
  Receive Date: 20251023
  Receipt Date: 20251023
  Transmission Date: 20260118
  Serious: Yes (Hospitalization, Other)
  Sender: ELI LILLY AND COMPANY
  Company Number: EU-ELI_LILLY_AND_COMPANY-PT202510017603

PATIENT
  Age: 74 Year
  Sex: Male

DRUGS (4)
  1. JAYPIRCA [Suspect]
     Active Substance: PIRTOBRUTINIB
     Indication: Mantle cell lymphoma
     Dosage: 200 MG, DAILY (ONCE DAILY)
     Route: 065
     Dates: start: 202409, end: 202503
  2. JAYPIRCA [Suspect]
     Active Substance: PIRTOBRUTINIB
     Dosage: 200 MG, DAILY (ONCE DAILY)
     Route: 065
     Dates: start: 202503, end: 202505
  3. JAYPIRCA [Suspect]
     Active Substance: PIRTOBRUTINIB
     Dosage: 200 MG, DAILY (ONCE DAILY)
     Route: 065
     Dates: start: 202507, end: 202509
  4. APIXABAN [Concomitant]
     Active Substance: APIXABAN
     Indication: Atrial fibrillation

REACTIONS (6)
  - Craniocerebral injury [Unknown]
  - Fall [Unknown]
  - Urinary tract infection [Unknown]
  - Subdural haematoma [Unknown]
  - Subarachnoid haemorrhage [Unknown]
  - Petechiae [Recovered/Resolved]

NARRATIVE: CASE EVENT DATE: 20250301
